FAERS Safety Report 7283873-7 (Version None)
Quarter: 2011Q1

REPORT INFORMATION
  Report Type: 
  Country: None (occurrence: None)
  Receive Date: 20110209
  Receipt Date: 20110203
  Transmission Date: 20110831
  Serious: Yes (Other)
  Sender: FDA-Public Use
  Company Number: US-PFIZER INC-2011025438

PATIENT
  Sex: Female

DRUGS (2)
  1. PREMARIN [Suspect]
     Indication: OESTROGEN REPLACEMENT THERAPY
     Dosage: UNK
     Dates: start: 19800101
  2. BUTALBITAL AND CAFFEINE AND PARACETAMOL [Concomitant]
     Indication: MIGRAINE
     Dosage: 50/325/40
     Route: 048

REACTIONS (3)
  - CONJUNCTIVAL HAEMORRHAGE [None]
  - HEADACHE [None]
  - HYPERTENSION [None]
